FAERS Safety Report 24530671 (Version 1)
Quarter: 2024Q4

REPORT INFORMATION
  Report Type: Spontaneous
  Country: HU (occurrence: HU)
  Receive Date: 20241021
  Receipt Date: 20241021
  Transmission Date: 20250115
  Serious: Yes (Other)
  Sender: NOVARTIS
  Company Number: HU-002147023-NVSC2024HU203529

PATIENT
  Age: 59 Year
  Sex: Female

DRUGS (2)
  1. RIBOCICLIB [Suspect]
     Active Substance: RIBOCICLIB
     Indication: Breast cancer metastatic
     Dosage: UNK
     Route: 065
     Dates: start: 202008
  2. FULVESTRANT [Concomitant]
     Active Substance: FULVESTRANT
     Indication: Breast cancer metastatic
     Dosage: UNK
     Route: 065
     Dates: start: 202008

REACTIONS (7)
  - Neutropenia [Unknown]
  - Pericardial effusion [Unknown]
  - Cardiac tamponade [Recovered/Resolved]
  - Pericardial neoplasm [Unknown]
  - Respiration abnormal [Unknown]
  - Heart sounds abnormal [Unknown]
  - Atelectasis [Unknown]

NARRATIVE: CASE EVENT DATE: 20210301
